FAERS Safety Report 5783132-5 (Version None)
Quarter: 2008Q2

REPORT INFORMATION
  Report Type: 
  Country: None (occurrence: None)
  Receive Date: 20080619
  Receipt Date: 20080619
  Transmission Date: 20081010
  Serious: Yes (Hospitalization)
  Sender: FDA-Public Use
  Company Number: None

PATIENT
  Sex: Female
  Weight: 95.3 kg

DRUGS (1)
  1. CISPLATIN [Suspect]
     Dosage: 396 MG
     Dates: end: 20080603

REACTIONS (5)
  - BLOOD PHOSPHORUS INCREASED [None]
  - DYSPHAGIA [None]
  - REFUSAL OF TREATMENT BY PATIENT [None]
  - RENAL FAILURE ACUTE [None]
  - WEIGHT DECREASED [None]
